FAERS Safety Report 8159843-3 (Version None)
Quarter: 2012Q1

REPORT INFORMATION
  Report Type: 
  Country: None (occurrence: None)
  Receive Date: 20120103
  Receipt Date: 20111114
  Transmission Date: 20120608
  Serious: No
  Sender: FDA-Public Use
  Company Number: AE-2011-003475

PATIENT
  Age: 45 Year
  Sex: Male
  Weight: 99.7913 kg

DRUGS (3)
  1. RIBAVIRIN [Concomitant]
  2. PEGASYS [Concomitant]
  3. INCIVEK [Suspect]
     Dosage: 2250 MG (750 MG, 1 IN 8 HR), ORAL
     Route: 048
     Dates: start: 20111104

REACTIONS (7)
  - ANAL PRURITUS [None]
  - NAUSEA [None]
  - ANORECTAL DISCOMFORT [None]
  - PAINFUL DEFAECATION [None]
  - FATIGUE [None]
  - RASH PRURITIC [None]
  - PAIN [None]
